FAERS Safety Report 7265609-9 (Version None)
Quarter: 2011Q1

REPORT INFORMATION
  Report Type: 
  Country: None (occurrence: None)
  Receive Date: 20110131
  Receipt Date: 20110118
  Transmission Date: 20110831
  Serious: No
  Sender: FDA-Public Use
  Company Number: JP-ROCHE-756056

PATIENT
  Age: 47 Year
  Sex: Female

DRUGS (2)
  1. TAMIFLU [Suspect]
     Route: 048
     Dates: start: 20110117, end: 20110117
  2. TAMIFLU [Suspect]
     Route: 048
     Dates: start: 20110118

REACTIONS (1)
  - ACCIDENTAL OVERDOSE [None]
